FAERS Safety Report 5888862-2 (Version None)
Quarter: 2008Q3

REPORT INFORMATION
  Report Type: 
  Country: None (occurrence: None)
  Receive Date: 20080919
  Receipt Date: 20080910
  Transmission Date: 20090109
  Serious: Yes (Other)
  Sender: FDA-Public Use
  Company Number: PHHY2008SI20970

PATIENT
  Sex: Female

DRUGS (3)
  1. DIOVAN [Suspect]
     Indication: HYPERTENSION
     Dosage: 80 UNK, BID
  2. LESCOL XL [Concomitant]
  3. MARIVARIN [Concomitant]

REACTIONS (1)
  - ATRIAL FIBRILLATION [None]
